FAERS Safety Report 6495775-4 (Version None)
Quarter: 2009Q4

REPORT INFORMATION
  Report Type: 
  Country: None (occurrence: None)
  Receive Date: 20091214
  Receipt Date: 20090812
  Transmission Date: 20100525
  Serious: No
  Sender: FDA-Public Use
  Company Number: US-BRISTOL-MYERS SQUIBB COMPANY-14738363

PATIENT
  Age: 9 Year
  Sex: Female
  Weight: 34 kg

DRUGS (5)
  1. ABILIFY [Suspect]
     Indication: ASPERGER'S DISORDER
     Dates: start: 20081101
  2. ABILIFY [Suspect]
     Indication: OPPOSITIONAL DEFIANT DISORDER
     Dates: start: 20081101
  3. ABILIFY [Suspect]
     Indication: SOCIAL PHOBIA
     Dates: start: 20081101
  4. ABILIFY [Suspect]
     Indication: AGORAPHOBIA
     Dates: start: 20081101
  5. PROZAC [Concomitant]

REACTIONS (4)
  - INCREASED APPETITE [None]
  - MUSCULOSKELETAL STIFFNESS [None]
  - SOMNOLENCE [None]
  - WEIGHT INCREASED [None]
